FAERS Safety Report 16094291 (Version 1)
Quarter: 2019Q1

REPORT INFORMATION
  Report Type: Spontaneous
  Country: JP (occurrence: JP)
  Receive Date: 20190320
  Receipt Date: 20190320
  Transmission Date: 20190418
  Serious: Yes (Disabling, Other)
  Sender: FDA-Public Use
  Company Number: JP-FERRINGPH-2019FE01380

PATIENT

DRUGS (5)
  1. DESMOPRESSIN KYOWA [Suspect]
     Active Substance: DESMOPRESSIN
     Indication: DIABETES INSIPIDUS
     Route: 045
  2. MINIRINMELT [Suspect]
     Active Substance: DESMOPRESSIN ACETATE
     Indication: DIABETES INSIPIDUS
     Dosage: 240 ?G, 10 TIMES DAILY
     Route: 048
  3. MINIRINMELT [Suspect]
     Active Substance: DESMOPRESSIN ACETATE
     Dosage: 240 ?G, 3 TIMES DAILY
     Route: 048
  4. PSYCHONEUROTICUM [Concomitant]
  5. DESMOPRESSIN [Suspect]
     Active Substance: DESMOPRESSIN
     Indication: DIABETES INSIPIDUS
     Route: 045

REACTIONS (6)
  - Hypernatraemia [Unknown]
  - Aptyalism [Unknown]
  - Cerebral disorder [Unknown]
  - Overdose [Unknown]
  - Drug ineffective [Unknown]
  - Incorrect dose administered [Unknown]
